FAERS Safety Report 17979884 (Version 3)
Quarter: 2020Q4

REPORT INFORMATION
  Report Type: Spontaneous
  Country: US (occurrence: US)
  Receive Date: 20200703
  Receipt Date: 20201230
  Transmission Date: 20210113
  Serious: Yes (Other)
  Sender: FDA-Public Use
  Company Number: US-ASTRAZENECA-2020SE83305

PATIENT
  Age: 63 Year
  Sex: Female
  Weight: 109.8 kg

DRUGS (49)
  1. NEXIUM [Suspect]
     Active Substance: ESOMEPRAZOLE MAGNESIUM
     Indication: DYSPEPSIA
     Dosage: 40.0MG UNKNOWN
     Route: 048
     Dates: start: 2005, end: 2013
  2. DEXILANT [Suspect]
     Active Substance: DEXLANSOPRAZOLE
     Indication: DYSPEPSIA
     Route: 065
     Dates: start: 20160113
  3. AMMONIUM LACTATE. [Concomitant]
     Active Substance: AMMONIUM LACTATE
     Route: 065
     Dates: start: 20190412
  4. POLYETHYLENE GLYCOL [Concomitant]
     Active Substance: POLYETHYLENE GLYCOLS
     Route: 065
     Dates: start: 20180608
  5. VYTORIN [Concomitant]
     Active Substance: EZETIMIBE\SIMVASTATIN
     Route: 065
  6. ZANTAC 75 [Concomitant]
     Active Substance: RANITIDINE HYDROCHLORIDE
  7. NEXIUM [Suspect]
     Active Substance: ESOMEPRAZOLE MAGNESIUM
     Indication: DYSPEPSIA
     Dosage: GENERIC40.0MG UNKNOWN
     Route: 065
     Dates: start: 2015
  8. TRAZODONE [Concomitant]
     Active Substance: TRAZODONE HYDROCHLORIDE
     Route: 065
     Dates: start: 20190409
  9. METHYLPREDNISOLONE. [Concomitant]
     Active Substance: METHYLPREDNISOLONE
     Route: 065
  10. DICLOFENAC [Concomitant]
     Active Substance: DICLOFENAC
     Route: 065
     Dates: start: 20180131
  11. OXYCONTIN [Concomitant]
     Active Substance: OXYCODONE HYDROCHLORIDE
     Route: 065
  12. SERTRALINE [Concomitant]
     Active Substance: SERTRALINE HYDROCHLORIDE
     Route: 065
  13. PEPCID OTC [Concomitant]
     Active Substance: FAMOTIDINE
  14. NEXIUM [Suspect]
     Active Substance: ESOMEPRAZOLE MAGNESIUM
     Indication: DYSPEPSIA
     Route: 048
     Dates: start: 2005, end: 2019
  15. DEXILANT [Suspect]
     Active Substance: DEXLANSOPRAZOLE
     Indication: DYSPEPSIA
     Route: 065
     Dates: start: 2005, end: 2019
  16. HYDROXYZINE HYDROCHLORIDE. [Concomitant]
     Active Substance: HYDROXYZINE HYDROCHLORIDE
     Route: 065
     Dates: start: 20190429
  17. GABAPENTIN. [Concomitant]
     Active Substance: GABAPENTIN
     Route: 065
     Dates: start: 20180406
  18. AZITHROMYCIN ANHYDROUS. [Concomitant]
     Active Substance: AZITHROMYCIN ANHYDROUS
     Route: 065
     Dates: start: 20190129
  19. BETHANECHOL [Concomitant]
     Active Substance: BETHANECHOL
     Route: 065
     Dates: start: 20170608
  20. TERBINAFINE. [Concomitant]
     Active Substance: TERBINAFINE
     Route: 065
  21. DEXILANT [Suspect]
     Active Substance: DEXLANSOPRAZOLE
     Indication: DYSPEPSIA
     Dosage: 60.0MG UNKNOWN
     Route: 065
     Dates: start: 2016, end: 2019
  22. PANTOPRAZOLE [Suspect]
     Active Substance: PANTOPRAZOLE
     Indication: DYSPEPSIA
     Dosage: 40.0MG UNKNOWN
     Route: 065
     Dates: start: 2017
  23. PANTOPRAZOLE SODIUM. [Concomitant]
     Active Substance: PANTOPRAZOLE SODIUM
     Route: 065
     Dates: start: 20180406
  24. KETOCONAZOLE. [Concomitant]
     Active Substance: KETOCONAZOLE
     Route: 065
     Dates: start: 20180919
  25. TRIAMCINOLONE [Concomitant]
     Active Substance: TRIAMCINOLONE
     Route: 065
     Dates: start: 20180117
  26. LIDOCAINE. [Concomitant]
     Active Substance: LIDOCAINE
     Route: 065
  27. TUMS [Concomitant]
     Active Substance: CALCIUM CARBONATE
  28. ROLAIDS [Concomitant]
     Active Substance: CALCIUM CARBONATE\MAGNESIUM HYDROXIDE
  29. CRESTOR [Concomitant]
     Active Substance: ROSUVASTATIN CALCIUM
     Route: 065
  30. DIAZEPAM. [Concomitant]
     Active Substance: DIAZEPAM
     Route: 065
  31. LEVAQUIN [Concomitant]
     Active Substance: LEVOFLOXACIN
     Route: 065
  32. CLONAZEPAM. [Concomitant]
     Active Substance: CLONAZEPAM
     Route: 065
     Dates: start: 20180406
  33. AMOXICILLIN. [Concomitant]
     Active Substance: AMOXICILLIN
     Route: 065
     Dates: start: 20181130
  34. CEFDINIR. [Concomitant]
     Active Substance: CEFDINIR
     Route: 065
     Dates: start: 20170402
  35. GLIPIZIDE. [Concomitant]
     Active Substance: GLIPIZIDE
     Route: 065
  36. METFORMIN [Concomitant]
     Active Substance: METFORMIN HYDROCHLORIDE
     Route: 065
  37. SPIRONOLACTONE. [Concomitant]
     Active Substance: SPIRONOLACTONE
     Route: 065
  38. CELEBREX [Concomitant]
     Active Substance: CELECOXIB
     Route: 065
  39. FLUCONAZOLE. [Concomitant]
     Active Substance: FLUCONAZOLE
     Route: 065
  40. OMEPRAZOLE. [Suspect]
     Active Substance: OMEPRAZOLE
     Indication: DYSPEPSIA
     Dosage: 20.0MG UNKNOWN
     Route: 065
     Dates: start: 2013
  41. METHOCARBAMOL. [Concomitant]
     Active Substance: METHOCARBAMOL
     Route: 065
  42. PREDNISONE. [Concomitant]
     Active Substance: PREDNISONE
     Route: 065
     Dates: start: 20180131
  43. MENTAX [Concomitant]
     Active Substance: BUTENAFINE HYDROCHLORIDE
     Route: 065
  44. AVELOX [Concomitant]
     Active Substance: MOXIFLOXACIN HYDROCHLORIDE
     Route: 065
  45. LISINOPRIL AND HYDROCHLOROTHIAZIDE [Concomitant]
     Active Substance: HYDROCHLOROTHIAZIDE\LISINOPRIL
     Route: 065
     Dates: start: 20180406
  46. MOVANTIK [Concomitant]
     Active Substance: NALOXEGOL OXALATE
     Route: 065
     Dates: start: 20180306
  47. VITAMIN D2 [Concomitant]
     Active Substance: ERGOCALCIFEROL
     Route: 065
     Dates: start: 20180919
  48. NORTRIPTYLINE [Concomitant]
     Active Substance: NORTRIPTYLINE
     Route: 065
     Dates: start: 20190207
  49. NAPROXEN. [Concomitant]
     Active Substance: NAPROXEN
     Route: 065

REACTIONS (3)
  - Acute kidney injury [Not Recovered/Not Resolved]
  - Chronic kidney disease [Not Recovered/Not Resolved]
  - Nephrolithiasis [Not Recovered/Not Resolved]

NARRATIVE: CASE EVENT DATE: 2018
